FAERS Safety Report 16465994 (Version 3)
Quarter: 2020Q1

REPORT INFORMATION
  Report Type: Other
  Country: US (occurrence: US)
  Receive Date: 20190621
  Receipt Date: 20200324
  Transmission Date: 20200409
  Serious: No
  Sender: FDA-Public Use
  Company Number: US-ACORDA-ACO_158284_2019

PATIENT
  Sex: Male

DRUGS (2)
  1. INBRIJA [Suspect]
     Active Substance: LEVODOPA
     Indication: ON AND OFF PHENOMENON
  2. INBRIJA [Suspect]
     Active Substance: LEVODOPA
     Indication: PARKINSON^S DISEASE
     Dosage: 2 CAPSULES,UP TO 5X/QD PRN
     Dates: start: 20190703, end: 20190724

REACTIONS (8)
  - Choking [Recovered/Resolved]
  - Product residue present [Recovered/Resolved]
  - Malaise [Unknown]
  - Device difficult to use [Unknown]
  - Drug ineffective [Unknown]
  - Device colour issue [Unknown]
  - Device issue [Unknown]
  - Cough [Recovered/Resolved]
